FAERS Safety Report 21708573 (Version 2)
Quarter: 2023Q1

REPORT INFORMATION
  Report Type: Spontaneous
  Country: FR (occurrence: FR)
  Receive Date: 20221210
  Receipt Date: 20230107
  Transmission Date: 20230417
  Serious: Yes (Hospitalization, Other)
  Sender: FDA-Public Use
  Company Number: FR-AFSSAPS-MP20223509

PATIENT
  Age: 74 Year
  Sex: Male
  Weight: 79 kg

DRUGS (12)
  1. FUROSEMIDE [Suspect]
     Active Substance: FUROSEMIDE
     Indication: Product used for unknown indication
     Dosage: 20 MILLIGRAM, TWO TIMES A DAY
     Route: 065
     Dates: start: 20221102
  2. MEROPENEM [Suspect]
     Active Substance: MEROPENEM
     Indication: Pneumonia aspiration
     Dosage: 6 GRAM, ONCE A DAY
     Route: 065
     Dates: start: 20221014
  3. MEROPENEM [Suspect]
     Active Substance: MEROPENEM
     Dosage: 6 GRAM, ONCE A DAY
     Route: 065
     Dates: start: 20221028
  4. ARANESP [Suspect]
     Active Substance: DARBEPOETIN ALFA
     Indication: Anaemia
     Dosage: 100 MICROGRAM, EVERY WEEK
     Route: 058
     Dates: start: 20221020, end: 20221102
  5. ARANESP [Suspect]
     Active Substance: DARBEPOETIN ALFA
     Dosage: UNK, EVERY WEEK
     Route: 065
     Dates: start: 20221102
  6. EPREX [Suspect]
     Active Substance: ERYTHROPOIETIN
     Indication: Anaemia
     Dosage: 30000 INTERNATIONAL UNIT, EVERY WEEK
     Route: 058
     Dates: start: 20220506, end: 20220704
  7. EPREX [Suspect]
     Active Substance: ERYTHROPOIETIN
     Dosage: 60000 INTERNATIONAL UNIT, EVERY WEEK
     Route: 058
     Dates: start: 20220704, end: 202209
  8. PIPERACILLIN SODIUM\TAZOBACTAM SODIUM [Suspect]
     Active Substance: PIPERACILLIN SODIUM\TAZOBACTAM SODIUM
     Indication: Pneumonia aspiration
     Dosage: UNK
     Route: 065
     Dates: start: 20221009, end: 20221013
  9. TRIMEBUTINE MALEATE [Concomitant]
     Active Substance: TRIMEBUTINE MALEATE
     Indication: Gastrointestinal procedural complication
     Dosage: 3 FOIS PAR JOUR
     Route: 065
     Dates: start: 20221102
  10. LOVENOX [Concomitant]
     Active Substance: ENOXAPARIN SODIUM
     Indication: Thrombosis prophylaxis
     Dosage: UNK
     Route: 065
     Dates: start: 20221009, end: 20221025
  11. DOLIPRANE [Concomitant]
     Active Substance: ACETAMINOPHEN
     Indication: Product used for unknown indication
     Dosage: UNK
     Route: 065
     Dates: start: 20221102
  12. CASPOFUNGIN [Concomitant]
     Active Substance: CASPOFUNGIN
     Indication: Antifungal prophylaxis
     Dosage: UNK
     Route: 065
     Dates: start: 20221107

REACTIONS (1)
  - Aplasia pure red cell [Unknown]

NARRATIVE: CASE EVENT DATE: 20221108
